FAERS Safety Report 9893843 (Version 1)
Quarter: 2014Q1

REPORT INFORMATION
  Report Type: Spontaneous
  Country: US (occurrence: US)
  Receive Date: 20140213
  Receipt Date: 20140213
  Transmission Date: 20141002
  Serious: Yes (Other)
  Sender: FDA-Public Use
  Company Number: US-ASTRAZENECA-2014SE08881

PATIENT
  Age: 47 Year
  Sex: Female
  Weight: 78.9 kg

DRUGS (2)
  1. CRESTOR [Suspect]
     Indication: BLOOD CHOLESTEROL INCREASED
     Route: 048
     Dates: start: 201401, end: 201402
  2. LEVOTHYROXINE [Concomitant]
     Indication: THYROID DISORDER
     Dates: start: 2013

REACTIONS (3)
  - Haemorrhage [Recovering/Resolving]
  - Pain [Recovering/Resolving]
  - Faeces discoloured [Unknown]
